FAERS Safety Report 10596504 (Version 2)
Quarter: 2014Q4

REPORT INFORMATION
  Report Type: Report from Study
  Country: NL (occurrence: NL)
  Receive Date: 20141120
  Receipt Date: 20141120
  Transmission Date: 20150529
  Serious: Yes (Other)
  Sender: FDA-Public Use
  Company Number: NL-BAYER-2014-058220

PATIENT
  Age: 22 Year
  Sex: Male

DRUGS (1)
  1. BETAFERON [Suspect]
     Active Substance: INTERFERON BETA-1B
     Indication: MULTIPLE SCLEROSIS
     Dosage: 250 ?G, QOD
     Dates: end: 2014

REACTIONS (4)
  - Fatigue [None]
  - Multiple sclerosis [None]
  - Headache [None]
  - Influenza [Recovered/Resolved]

NARRATIVE: CASE EVENT DATE: 201404
